FAERS Safety Report 15984364 (Version 1)
Quarter: 2019Q1

REPORT INFORMATION
  Report Type: Spontaneous
  Country: ES (occurrence: ES)
  Receive Date: 20190220
  Receipt Date: 20190220
  Transmission Date: 20190418
  Serious: Yes (Other)
  Sender: FDA-Public Use
  Company Number: ES-ACCORD-108373

PATIENT
  Age: 65 Year
  Sex: Male

DRUGS (2)
  1. ATORVASTATIN (7400A) [Suspect]
     Active Substance: ATORVASTATIN
     Indication: HYPERCHOLESTEROLAEMIA
     Route: 048
     Dates: start: 20160126, end: 20180529
  2. HIDROFEROL [Concomitant]
     Active Substance: CALCIFEDIOL
     Dosage: HYDROFEROL 0.266 MG SOFT CAPSULES, 5 CAPSULES (BLISTER PVC / PVDC-ALUMINUM),
     Route: 048
     Dates: start: 20170424

REACTIONS (2)
  - Myalgia [Recovered/Resolved]
  - Erectile dysfunction [Recovered/Resolved]

NARRATIVE: CASE EVENT DATE: 201805
